FAERS Safety Report 8820688 (Version 1)
Quarter: 2012Q4

REPORT INFORMATION
  Report Type: 
  Country: GB (occurrence: GB)
  Receive Date: 20121002
  Receipt Date: 20121002
  Transmission Date: 20130627
  Serious: Yes (Other)
  Sender: FDA-Public Use
  Company Number: GB-TEVA-358632ISR

PATIENT
  Age: 33 Year
  Sex: Female

DRUGS (1)
  1. LEVONORGESTREL 1.5 MG TABLET [Suspect]
     Indication: POST COITAL CONTRACEPTION
     Route: 048
     Dates: start: 20120730, end: 20120730

REACTIONS (3)
  - Pregnancy after post coital contraception [Recovered/Resolved]
  - Exposure during pregnancy [Recovered/Resolved]
  - Abortion spontaneous [Recovered/Resolved]
